FAERS Safety Report 5684465-3 (Version None)
Quarter: 2008Q1

REPORT INFORMATION
  Report Type: 
  Country: None (occurrence: None)
  Receive Date: 20080327
  Receipt Date: 20080327
  Transmission Date: 20080703
  Serious: Yes (Other)
  Sender: FDA-Public Use
  Company Number: None

PATIENT
  Age: 66 Year
  Sex: Female
  Weight: 53.0709 kg

DRUGS (1)
  1. ALTABAX [Suspect]
     Indication: SKIN IRRITATION
     Dosage: 1% OINT - 3X DAILY

REACTIONS (2)
  - APPLICATION SITE BURN [None]
  - APPLICATION SITE PAIN [None]
